FAERS Safety Report 8511821-8 (Version None)
Quarter: 2012Q3

REPORT INFORMATION
  Report Type: 
  Country: None (occurrence: None)
  Receive Date: 20120711
  Receipt Date: 20120711
  Transmission Date: 20120928
  Serious: Yes (Hospitalization)
  Sender: FDA-Public Use
  Company Number: None

PATIENT
  Sex: Male
  Weight: 67.7 kg

DRUGS (1)
  1. NAFCILLIN SODIUM [Suspect]
     Indication: ENDOCARDITIS
     Dosage: 2G Q4K IV
     Route: 042
     Dates: start: 20120423, end: 20120513

REACTIONS (3)
  - PRURITUS [None]
  - RASH [None]
  - BLOOD CREATININE INCREASED [None]
